FAERS Safety Report 18285081 (Version 4)
Quarter: 2020Q4

REPORT INFORMATION
  Report Type: Spontaneous
  Country: US (occurrence: US)
  Receive Date: 20200918
  Receipt Date: 20201013
  Transmission Date: 20210113
  Serious: Yes (Hospitalization)
  Sender: FDA-Public Use
  Company Number: US-PFIZER INC-2020353777

PATIENT
  Age: 65 Year
  Sex: Female
  Weight: 100.9 kg

DRUGS (2)
  1. CEREBYX [Suspect]
     Active Substance: FOSPHENYTOIN SODIUM
     Dosage: SECOND LOADING DOSE
     Dates: start: 20200811
  2. CEREBYX [Suspect]
     Active Substance: FOSPHENYTOIN SODIUM
     Indication: STATUS EPILEPTICUS
     Dosage: LOADED WITH 20MG/KG (1540MG ONE TIME LOADING BOLUS)
     Dates: start: 20200810

REACTIONS (1)
  - Drug ineffective [Unknown]
